FAERS Safety Report 24260553 (Version 1)
Quarter: 2024Q3

REPORT INFORMATION
  Report Type: Spontaneous
  Country: CN (occurrence: CN)
  Receive Date: 20240828
  Receipt Date: 20240828
  Transmission Date: 20241017
  Serious: Yes (Other)
  Sender: PFIZER
  Company Number: CN-PFIZER INC-PV202400110629

PATIENT
  Age: 66 Year
  Sex: Female
  Weight: 59.6 kg

DRUGS (2)
  1. EXEMESTANE [Suspect]
     Active Substance: EXEMESTANE
     Indication: Breast cancer female
     Dosage: 25 MG, 1X/DAY (QD)
     Route: 048
     Dates: start: 20240120, end: 20240228
  2. ABEMACICLIB [Suspect]
     Active Substance: ABEMACICLIB
     Indication: Breast cancer female
     Dosage: 150 MG, 2X/DAY (BID)
     Route: 048
     Dates: start: 20240120, end: 20240228

REACTIONS (3)
  - White blood cell count decreased [Recovering/Resolving]
  - Hypokalaemia [Recovering/Resolving]
  - Initial insomnia [Recovering/Resolving]

NARRATIVE: CASE EVENT DATE: 20240205
